FAERS Safety Report 6613207-X (Version None)
Quarter: 2010Q1

REPORT INFORMATION
  Report Type: 
  Country: None (occurrence: None)
  Receive Date: 20100304
  Receipt Date: 20100219
  Transmission Date: 20100710
  Serious: Yes (Other)
  Sender: FDA-Public Use
  Company Number: US-JNJFOC-20100300520

PATIENT
  Sex: Female
  Weight: 110.22 kg

DRUGS (10)
  1. PEPCID COMPLETE BERRY [Suspect]
     Route: 048
  2. PEPCID COMPLETE BERRY [Suspect]
     Indication: DYSPEPSIA
     Route: 048
  3. MANY OTHER UNSPECIFIED MEDICATIONS [Concomitant]
     Indication: ULCER
  4. INDERAL [Concomitant]
     Indication: HEART RATE
  5. PROMETHAZINE [Concomitant]
     Indication: NAUSEA
  6. MAXALT [Concomitant]
     Indication: MIGRAINE
  7. AMBIEN [Concomitant]
     Indication: INSOMNIA
  8. PERCOCET [Concomitant]
  9. SOMA [Concomitant]
  10. NORCO [Concomitant]

REACTIONS (5)
  - ABDOMINAL PAIN UPPER [None]
  - ANAL HAEMORRHAGE [None]
  - CHOKING [None]
  - HAEMOPTYSIS [None]
  - PRODUCT QUALITY ISSUE [None]
